FAERS Safety Report 15382852 (Version 1)
Quarter: 2018Q3

REPORT INFORMATION
  Report Type: Spontaneous
  Country: US (occurrence: US)
  Receive Date: 20180913
  Receipt Date: 20180913
  Transmission Date: 20181010
  Serious: No
  Sender: FDA-Public Use
  Company Number: US-ASTELLAS-2017US038026

PATIENT
  Sex: Male

DRUGS (2)
  1. XTANDI [Suspect]
     Active Substance: ENZALUTAMIDE
     Route: 048
  2. XTANDI [Suspect]
     Active Substance: ENZALUTAMIDE
     Indication: HORMONE-REFRACTORY PROSTATE CANCER
     Route: 048

REACTIONS (9)
  - Diarrhoea [Unknown]
  - Weight decreased [Unknown]
  - Fatigue [Recovering/Resolving]
  - Hypersomnia [Unknown]
  - Abdominal distension [Unknown]
  - Headache [Unknown]
  - Hot flush [Unknown]
  - Asthenia [Unknown]
  - Nausea [Recovering/Resolving]
